FAERS Safety Report 12788899 (Version 3)
Quarter: 2016Q4

REPORT INFORMATION
  Report Type: Spontaneous
  Country: NL (occurrence: NL)
  Receive Date: 20160928
  Receipt Date: 20161013
  Transmission Date: 20170207
  Serious: Yes (Other)
  Sender: FDA-Public Use
  Company Number: NL-TEVA-693038ROM

PATIENT
  Age: 18 Year
  Sex: Male

DRUGS (1)
  1. DESMOPRESSINE-ACETAAT TEVA 0,1 MG, TABLETTEN [Suspect]
     Active Substance: DESMOPRESSIN ACETATE
     Indication: PROPHYLAXIS
     Dosage: .6 MILLIGRAM DAILY;
     Route: 048
     Dates: end: 20160915

REACTIONS (9)
  - Drug ineffective [Unknown]
  - Daydreaming [Recovered/Resolved]
  - Micturition disorder [Not Recovered/Not Resolved]
  - Blood sodium increased [Not Recovered/Not Resolved]
  - Polyuria [Unknown]
  - Pollakiuria [Not Recovered/Not Resolved]
  - Malaise [Unknown]
  - Product substitution issue [Unknown]
  - Overdose [Unknown]

NARRATIVE: CASE EVENT DATE: 201609
